FAERS Safety Report 4867970-9 (Version None)
Quarter: 2005Q4

REPORT INFORMATION
  Report Type: 
  Country: None (occurrence: None)
  Receive Date: 20051227
  Receipt Date: 20051214
  Transmission Date: 20060501
  Serious: Yes (Hospitalization)
  Sender: FDA-Public Use
  Company Number: BE-JNJFOC-20051203524

PATIENT
  Age: 33 Year
  Sex: Male
  Weight: 89.4 kg

DRUGS (2)
  1. RISPERDAL [Suspect]
     Indication: SCHIZOPHRENIA
     Dosage: 2 MG, IN 1 DAY, ORAL
     Route: 048
     Dates: start: 20040217, end: 20050119
  2. ABILIFY [Suspect]
     Indication: SCHIZOPHRENIA
     Dosage: 15 MG, IN 1 DAY, ORAL
     Route: 048
     Dates: start: 20050203

REACTIONS (4)
  - BLOOD CHOLESTEROL INCREASED [None]
  - BLOOD TRIGLYCERIDES INCREASED [None]
  - DRUG INTERACTION [None]
  - DYSLIPIDAEMIA [None]
